FAERS Safety Report 17458719 (Version 3)
Quarter: 2020Q1

REPORT INFORMATION
  Report Type: Report from Study
  Country: DE (occurrence: DE)
  Receive Date: 20200225
  Receipt Date: 20200318
  Transmission Date: 20200409
  Serious: Yes (Hospitalization)
  Sender: FDA-Public Use
  Company Number: DE-JNJFOC-20170924521

PATIENT
  Age: 51 Year
  Sex: Male
  Weight: 80 kg

DRUGS (2)
  1. SIMPONI [Suspect]
     Active Substance: GOLIMUMAB
     Indication: INFLAMMATORY BOWEL DISEASE
     Route: 058
     Dates: start: 20161206
  2. SIMPONI [Suspect]
     Active Substance: GOLIMUMAB
     Indication: COLITIS ULCERATIVE

REACTIONS (13)
  - Pollakiuria [Unknown]
  - Off label use [Unknown]
  - White blood cell count increased [Unknown]
  - Hospitalisation [Recovered/Resolved]
  - Drug ineffective [Unknown]
  - Frequent bowel movements [Unknown]
  - Cardiovascular disorder [Unknown]
  - Bacterial infection [Not Recovered/Not Resolved]
  - Incorrect dose administered [Unknown]
  - Anaemia [Unknown]
  - Gastrointestinal inflammation [Unknown]
  - Dysarthria [Unknown]
  - Arthralgia [Unknown]

NARRATIVE: CASE EVENT DATE: 20161206
